FAERS Safety Report 19165572 (Version 2)
Quarter: 2021Q3

REPORT INFORMATION
  Report Type: Spontaneous
  Country: LT (occurrence: LT)
  Receive Date: 20210421
  Receipt Date: 20210721
  Transmission Date: 20211014
  Serious: Yes (Other)
  Sender: FDA-Public Use
  Company Number: LT-TEVA-2021-LT-1901748

PATIENT
  Age: 77 Year
  Sex: Female

DRUGS (5)
  1. QUETIAPINI [Suspect]
     Active Substance: QUETIAPINE
     Dosage: 75 MILLIGRAM DAILY;
     Route: 065
  2. QUETIAPINI [Suspect]
     Active Substance: QUETIAPINE
     Dosage: 12.5 MILLIGRAM DAILY;
     Route: 065
  3. QUETIAPINI [Suspect]
     Active Substance: QUETIAPINE
     Dosage: 75 MILLIGRAM DAILY; 75 MG DAILY (50 MG AT NIGHT, 12.5 MG IN THE MORNING AND LUNCH).
     Route: 065
  4. QUETIAPINI [Suspect]
     Active Substance: QUETIAPINE
     Dosage: 25 MILLIGRAM DAILY;
     Route: 065
  5. QUETIAPINI [Suspect]
     Active Substance: QUETIAPINE
     Dosage: 50 MILLIGRAM DAILY;
     Route: 065

REACTIONS (4)
  - Incorrect dose administered [Unknown]
  - Bradykinesia [Recovering/Resolving]
  - Extrapyramidal disorder [Recovering/Resolving]
  - Muscle tone disorder [Recovering/Resolving]
